FAERS Safety Report 8998043 (Version 3)
Quarter: 2013Q1

REPORT INFORMATION
  Report Type: Report from Study
  Country: HU (occurrence: HU)
  Receive Date: 20130104
  Receipt Date: 20130327
  Transmission Date: 20140127
  Serious: Yes (Hospitalization)
  Sender: FDA-Public Use
  Company Number: HU-VERTEX PHARMACEUTICALS INC.-2013-000158

PATIENT
  Age: 60 Year
  Sex: Female
  Weight: 60 kg

DRUGS (3)
  1. VX-950 (TELAPREVIR) [Suspect]
     Indication: HEPATITIS C
     Dosage: 750 MG, TID
     Route: 065
     Dates: start: 20120928, end: 20121220
  2. RIBAVIRIN [Suspect]
     Indication: HEPATITIS
     Dosage: 200 MG, UNK
     Route: 065
     Dates: start: 20120928
  3. PEG-INTERFERON [Suspect]
     Indication: HEPATITIS
     Dosage: 135 MG, UNK
     Route: 065
     Dates: start: 20120928

REACTIONS (1)
  - Toxic skin eruption [Recovered/Resolved]
